FAERS Safety Report 6773564-0 (Version None)
Quarter: 2010Q2

REPORT INFORMATION
  Report Type: 
  Country: None (occurrence: None)
  Receive Date: 20100611
  Receipt Date: 20100603
  Transmission Date: 20101027
  Serious: Yes (Disabling)
  Sender: FDA-Public Use
  Company Number: CRC-10-083

PATIENT
  Age: 80 Year
  Sex: Female
  Weight: 63.5036 kg

DRUGS (2)
  1. CARBIDOPA AND LEVODOPA [Suspect]
     Indication: PARKINSON'S DISEASE
     Dosage: 2 TABLETS 4 TIMES DAILY, FOR A WHILE
  2. MIRAPAX (BRAND) [Concomitant]

REACTIONS (2)
  - HEADACHE [None]
  - PALPITATIONS [None]
